FAERS Safety Report 9868257 (Version 1)
Quarter: 2014Q1

REPORT INFORMATION
  Report Type: Report from Study
  Country: ES (occurrence: ES)
  Receive Date: 20140204
  Receipt Date: 20140204
  Transmission Date: 20141002
  Serious: Yes (Other)
  Sender: FDA-Public Use
  Company Number: ES-BRISTOL-MYERS SQUIBB COMPANY-20079802

PATIENT
  Age: 58 Year
  Sex: Female

DRUGS (7)
  1. PACLITAXEL [Suspect]
     Indication: HER-2 POSITIVE BREAST CANCER
  2. PERTUZUMAB [Suspect]
     Indication: HER-2 POSITIVE BREAST CANCER
     Route: 065
  3. TRASTUZUMAB [Suspect]
     Indication: HER-2 POSITIVE BREAST CANCER
     Route: 065
  4. QUETIAPINE [Concomitant]
     Dates: start: 20130226
  5. LISINOPRIL [Concomitant]
     Dates: start: 2012
  6. VENLAFAXINE HCL [Concomitant]
     Dates: start: 20130226
  7. OMEPRAZOLE [Concomitant]
     Dates: start: 20130226

REACTIONS (1)
  - Ejection fraction decreased [Not Recovered/Not Resolved]
